FAERS Safety Report 16887337 (Version 1)
Quarter: 2019Q4

REPORT INFORMATION
  Report Type: Spontaneous
  Country: US (occurrence: US)
  Receive Date: 20191004
  Receipt Date: 20191004
  Transmission Date: 20200122
  Serious: Yes (Hospitalization, Disabling, Other)
  Sender: FDA-Public Use
  Company Number: US-JNJFOC-20190934614

PATIENT
  Age: 74 Year
  Sex: Female
  Weight: 61.29 kg

DRUGS (30)
  1. ADVAIR HFA [Concomitant]
     Active Substance: FLUTICASONE PROPIONATE\SALMETEROL XINAFOATE
  2. TIMOLOL. [Concomitant]
     Active Substance: TIMOLOL
     Dosage: 1 DROP BOTH EYES
  3. ACETAMINOPHEN. [Concomitant]
     Active Substance: ACETAMINOPHEN
  4. OXYBUTYNIN. [Concomitant]
     Active Substance: OXYBUTYNIN CHLORIDE
  5. TRAZODONE [Concomitant]
     Active Substance: TRAZODONE HYDROCHLORIDE
     Dosage: 1-2 TABS/ -/ 100MG/ BEDTIME/ -
  6. TRAVATAN Z [Concomitant]
     Active Substance: TRAVOPROST
     Dosage: 1 DROP BOTH EYES
  7. HYDROCHLOROTHIAZIDE. [Concomitant]
     Active Substance: HYDROCHLOROTHIAZIDE
  8. XARELTO [Suspect]
     Active Substance: RIVAROXABAN
     Indication: ATRIAL FIBRILLATION
     Route: 048
     Dates: start: 2018
  9. JANUVIA [Concomitant]
     Active Substance: SITAGLIPTIN PHOSPHATE
  10. FLONASE [Concomitant]
     Active Substance: FLUTICASONE PROPIONATE
     Dosage: AS NEEDED
  11. ALBUTEROL                          /00139501/ [Concomitant]
     Active Substance: ALBUTEROL
     Dosage: 3 ML/0.6 AS NEEDED
  12. ESTRACE [Concomitant]
     Active Substance: ESTRADIOL
     Dosage: AS NEEDED
  13. CYMBALTA [Concomitant]
     Active Substance: DULOXETINE HYDROCHLORIDE
  14. AMLODIPINE [Concomitant]
     Active Substance: AMLODIPINE BESYLATE
  15. CARAFATE [Concomitant]
     Active Substance: SUCRALFATE
     Dosage: AS NEEDED
  16. BETAMETHASONE DIPROPIONATE. [Concomitant]
     Active Substance: BETAMETHASONE DIPROPIONATE
     Dosage: AS NEEDED
  17. TRAMADOL. [Concomitant]
     Active Substance: TRAMADOL
  18. PRESERVISION [Concomitant]
     Active Substance: MINERALS\VITAMINS
  19. ATORVASTATIN [Concomitant]
     Active Substance: ATORVASTATIN
  20. PROAIR HFA [Concomitant]
     Active Substance: ALBUTEROL SULFATE
     Dosage: 2 SPRAYS
  21. METOPROLOL. [Concomitant]
     Active Substance: METOPROLOL
  22. GABAPENTIN. [Concomitant]
     Active Substance: GABAPENTIN
  23. DEXILANT [Concomitant]
     Active Substance: DEXLANSOPRAZOLE
  24. XARELTO [Suspect]
     Active Substance: RIVAROXABAN
     Indication: CEREBROVASCULAR ACCIDENT PROPHYLAXIS
  25. CETIRIZINE [Concomitant]
     Active Substance: CETIRIZINE HYDROCHLORIDE
  26. TURBOVITE BOLT [Concomitant]
     Dosage: AS NEEDED
  27. MONTELUKAST [Concomitant]
     Active Substance: MONTELUKAST SODIUM
  28. METFORMIN [Concomitant]
     Active Substance: METFORMIN HYDROCHLORIDE
  29. OMEGA 3 FISH OIL                   /01334101/ [Concomitant]
     Active Substance: FISH OIL
  30. TUMS [Concomitant]
     Active Substance: CALCIUM CARBONATE
     Dosage: AS NEEDED

REACTIONS (12)
  - Upper limb fracture [Unknown]
  - Bedridden [Recovered/Resolved]
  - Road traffic accident [Unknown]
  - Wound [Unknown]
  - Incontinence [Recovered/Resolved]
  - Body height decreased [Not Recovered/Not Resolved]
  - Joint dislocation [Unknown]
  - Rash [Recovered/Resolved]
  - Ankle fracture [Unknown]
  - Femur fracture [Unknown]
  - Dermatillomania [Not Recovered/Not Resolved]
  - Pruritus [Recovered/Resolved]

NARRATIVE: CASE EVENT DATE: 201902
